FAERS Safety Report 9837196 (Version 1)
Quarter: 2013Q4

REPORT INFORMATION
  Report Type: Spontaneous
  Country: US (occurrence: None)
  Receive Date: 20131127
  Receipt Date: 20131127
  Transmission Date: 20140711
  Serious: Yes (Hospitalization)
  Sender: FDA-Public Use
  Company Number: 2012-22316

PATIENT
  Age: 86 Year
  Sex: Male
  Weight: 88 kg

DRUGS (2)
  1. RAPAFLO [Suspect]
     Indication: NOCTURIA
     Dosage: 8MG, 1 CAPSULE QD, ORAL
     Route: 048
     Dates: start: 20121130, end: 20121203
  2. XELODA (CAPECITABINE) [Suspect]
     Indication: CHOLANGIOCARCINOMA
     Route: 048
     Dates: start: 201112

REACTIONS (2)
  - Diarrhoea [None]
  - Abdominal pain lower [None]
